FAERS Safety Report 15689082 (Version 3)
Quarter: 2019Q1

REPORT INFORMATION
  Report Type: Spontaneous
  Country: US (occurrence: US)
  Receive Date: 20181205
  Receipt Date: 20190220
  Transmission Date: 20190417
  Serious: Yes (Life-Threatening, Hospitalization, Other)
  Sender: FDA-Public Use
  Company Number: US-ASTRAZENECA-2018SF58390

PATIENT
  Sex: Male
  Weight: 90.7 kg

DRUGS (5)
  1. BRILINTA [Suspect]
     Active Substance: TICAGRELOR
     Indication: STENT PLACEMENT
     Dosage: 90.0MG UNKNOWN
     Route: 048
     Dates: start: 201706, end: 201811
  2. ASPIRIN. [Concomitant]
     Active Substance: ASPIRIN
     Dosage: DAILY
     Route: 048
  3. COREG [Concomitant]
     Active Substance: CARVEDILOL
  4. BRILINTA [Suspect]
     Active Substance: TICAGRELOR
     Indication: MYOCARDIAL INFARCTION
     Dosage: 90.0MG UNKNOWN
     Route: 048
     Dates: start: 201706, end: 201811
  5. INSULIN [Concomitant]
     Active Substance: INSULIN NOS
     Indication: TYPE 1 DIABETES MELLITUS
     Dosage: UNKNOWN
     Route: 065

REACTIONS (7)
  - Pericarditis [Recovering/Resolving]
  - Vascular stent thrombosis [Unknown]
  - Blood disorder [Unknown]
  - Contusion [Not Recovered/Not Resolved]
  - Haemorrhagic diathesis [Unknown]
  - Myocardial infarction [Recovering/Resolving]
  - Drug ineffective [Not Recovered/Not Resolved]
